FAERS Safety Report 11557421 (Version 3)
Quarter: 2015Q4

REPORT INFORMATION
  Report Type: Report from Study
  Country: DE (occurrence: DE)
  Receive Date: 20150925
  Receipt Date: 20151116
  Transmission Date: 20160304
  Serious: Yes (Other)
  Sender: FDA-Public Use
  Company Number: DE-UCBSA-2015029945

PATIENT
  Age: 52 Year
  Sex: Female
  Weight: 98 kg

DRUGS (7)
  1. CERTOLIZUMAB PEGOL RA [Suspect]
     Active Substance: CERTOLIZUMAB PEGOL
     Indication: RHEUMATOID ARTHRITIS
     Dosage: 200 MG, EV 2 WEEKS(QOW)
     Route: 058
     Dates: start: 20140123, end: 20150119
  2. PANTOPRAZOLE [Concomitant]
     Active Substance: PANTOPRAZOLE SODIUM
     Indication: PROPHYLAXIS
     Dosage: 40 MG, ONCE DAILY (QD)
     Route: 048
     Dates: start: 20120717
  3. METEX [Concomitant]
     Active Substance: METFORMIN HYDROCHLORIDE
     Dosage: 15 MG, WEEKLY (QW)
     Route: 058
     Dates: start: 20140818, end: 20150430
  4. PREDNISOLONE. [Concomitant]
     Active Substance: PREDNISOLONE
     Indication: RHEUMATOID ARTHRITIS
     Dosage: ALTERNATING 10 MG OR 5 MG
     Route: 048
     Dates: start: 20140818
  5. METEX [Concomitant]
     Active Substance: METFORMIN HYDROCHLORIDE
     Dosage: 15 MG, WEEKLY (QW)
     Route: 048
     Dates: start: 20130703, end: 20140818
  6. METEX [Concomitant]
     Active Substance: METFORMIN HYDROCHLORIDE
     Indication: RHEUMATOID ARTHRITIS
     Dosage: 10 MG, WEEKLY (QW)
     Route: 048
     Dates: start: 20120717, end: 20130703
  7. DEKRISTOL [Concomitant]
     Active Substance: CHOLECALCIFEROL
     Indication: PROPHYLAXIS
     Dosage: 400 IU, 2X/DAY (BID)
     Route: 048
     Dates: start: 20131114

REACTIONS (1)
  - Basal cell carcinoma [Recovered/Resolved]

NARRATIVE: CASE EVENT DATE: 20141104
